FAERS Safety Report 18736607 (Version 5)
Quarter: 2022Q1

REPORT INFORMATION
  Report Type: Report from Study
  Country: US (occurrence: US)
  Receive Date: 20210113
  Receipt Date: 20220110
  Transmission Date: 20220423
  Serious: Yes (Hospitalization, Other)
  Sender: FDA-Public Use
  Company Number: NVSC2021US006235

PATIENT
  Sex: Female

DRUGS (2)
  1. ENTRESTO [Suspect]
     Active Substance: SACUBITRIL\VALSARTAN
     Indication: Cardiac failure
     Dosage: UNK
     Route: 048
     Dates: end: 20210109
  2. ENTRESTO [Suspect]
     Active Substance: SACUBITRIL\VALSARTAN
     Dosage: 200 MG(97/103 MG)
     Route: 065

REACTIONS (7)
  - Spinal cord infection [Recovering/Resolving]
  - Spinal cord injury [Recovered/Resolved]
  - Psoriatic arthropathy [Unknown]
  - Heart rate increased [Unknown]
  - Fatigue [Recovering/Resolving]
  - Hypotension [Recovering/Resolving]
  - Peripheral swelling [Unknown]
